FAERS Safety Report 7478350-4 (Version None)
Quarter: 2011Q2

REPORT INFORMATION
  Report Type: 
  Country: None (occurrence: None)
  Receive Date: 20110513
  Receipt Date: 20110511
  Transmission Date: 20111010
  Serious: Yes (Death, Hospitalization)
  Sender: FDA-Public Use
  Company Number: IT-BAYER-2011-040462

PATIENT
  Age: 79 Year
  Sex: Male

DRUGS (1)
  1. NEXAVAR [Suspect]
     Indication: RENAL CANCER
     Dosage: DAILY DOSE 400 MG
     Route: 048
     Dates: start: 20070831, end: 20110415

REACTIONS (3)
  - AZOTAEMIA [None]
  - JAUNDICE [None]
  - HYPERBILIRUBINAEMIA [None]
